FAERS Safety Report 17008911 (Version 1)
Quarter: 2019Q4

REPORT INFORMATION
  Report Type: Spontaneous
  Country: US (occurrence: US)
  Receive Date: 20191108
  Receipt Date: 20191108
  Transmission Date: 20200122
  Serious: Yes (Other)
  Sender: FDA-Public Use
  Company Number: US-MYLANLABS-2019M1105358

PATIENT
  Age: 31 Year
  Sex: Female

DRUGS (2)
  1. PREDNISONE. [Suspect]
     Active Substance: PREDNISONE
     Indication: EOSINOPHILIC PNEUMONIA CHRONIC
     Dosage: 5-40MG
     Route: 065
  2. MYCOPHENOLATE MOFETIL. [Suspect]
     Active Substance: MYCOPHENOLATE MOFETIL
     Indication: EOSINOPHILIC PNEUMONIA CHRONIC
     Dosage: 3000 MILLIGRAM, QD
     Route: 065

REACTIONS (4)
  - Cushing^s syndrome [Unknown]
  - Drug ineffective [Unknown]
  - Steroid diabetes [Unknown]
  - Weight increased [Unknown]
